FAERS Safety Report 13673934 (Version 1)
Quarter: 2017Q2

REPORT INFORMATION
  Report Type: Spontaneous
  Country: US (occurrence: US)
  Receive Date: 20170620
  Receipt Date: 20170620
  Transmission Date: 20170830
  Serious: Yes (Hospitalization)
  Sender: FDA-Public Use
  Company Number: None

PATIENT
  Age: 72 Year
  Sex: Female
  Weight: 67.5 kg

DRUGS (11)
  1. COQ10 [Concomitant]
     Active Substance: UBIDECARENONE
  2. TRANSDERM SCOP [Suspect]
     Active Substance: SCOPOLAMINE
     Indication: MOTION SICKNESS
     Dosage: ?          QUANTITY:1 PATCH(ES);OTHER FREQUENCY:EVERY THREE DAYS;?
     Route: 062
     Dates: start: 20170520, end: 20170521
  3. FLECAINIDE [Concomitant]
     Active Substance: FLECAINIDE
  4. ELIQUIS [Concomitant]
     Active Substance: APIXABAN
  5. BIOTIN [Concomitant]
     Active Substance: BIOTIN
  6. VITAMIN D3 [Concomitant]
     Active Substance: CHOLECALCIFEROL
  7. POTASSIUM [Concomitant]
     Active Substance: POTASSIUM
  8. MAGNESIUM [Concomitant]
     Active Substance: MAGNESIUM
  9. RIZATRIPTAN. [Concomitant]
     Active Substance: RIZATRIPTAN
  10. LEVOTHYROXINE. [Concomitant]
     Active Substance: LEVOTHYROXINE
  11. METOPROLOL. [Concomitant]
     Active Substance: METOPROLOL

REACTIONS (10)
  - Balance disorder [None]
  - Coordination abnormal [None]
  - Confusional state [None]
  - Tremor [None]
  - Vomiting [None]
  - Malaise [None]
  - Dry mouth [None]
  - Asthenia [None]
  - Mydriasis [None]
  - Speech disorder [None]

NARRATIVE: CASE EVENT DATE: 20170521
